FAERS Safety Report 5341371-1 (Version None)
Quarter: 2007Q2

REPORT INFORMATION
  Report Type: 
  Country: None (occurrence: None)
  Receive Date: 20070404
  Receipt Date: 20061109
  Transmission Date: 20071010
  Serious: Yes (Other)
  Sender: FDA-Public Use
  Company Number: 2006138607

PATIENT
  Sex: Male

DRUGS (13)
  1. GEODON [Suspect]
     Indication: SCHIZOAFFECTIVE DISORDER
     Dosage: 240 MG (80 MG,3 IN 1 D)
  2. METFORMIN HCL [Concomitant]
  3. LISINOPRIL [Concomitant]
  4. GLIPIZIDE [Concomitant]
  5. COGENTIN [Concomitant]
  6. DEPAKOTE (VALPORATE SEMISODIUM) [Concomitant]
  7. HALDOL SOLUTAB [Concomitant]
  8. ASPIRIN [Concomitant]
  9. ATIVAN [Concomitant]
  10. BENADRYL [Concomitant]
  11. PRED FORTE [Concomitant]
  12. TYLENOL [Concomitant]
  13. NITROGLYCERIN [Concomitant]

REACTIONS (1)
  - BLOOD CREATINE PHOSPHOKINASE INCREASED [None]
